FAERS Safety Report 6233080-1 (Version None)
Quarter: 2009Q2

REPORT INFORMATION
  Report Type: 
  Country: None (occurrence: None)
  Receive Date: 20090616
  Receipt Date: 20090616
  Transmission Date: 20091009
  Serious: Yes (Hospitalization)
  Sender: FDA-Public Use
  Company Number: None

PATIENT
  Age: 79 Year
  Sex: Male
  Weight: 86.5 kg

DRUGS (10)
  1. RISPERIDONE [Suspect]
     Indication: BIPOLAR DISORDER
     Dosage: 1.5MG PO AT BEDTIME
     Dates: start: 20061201
  2. RISPERIDONE [Suspect]
     Indication: DEMENTIA
     Dosage: 1.5MG PO AT BEDTIME
     Dates: start: 20061201
  3. ASPIRIN [Concomitant]
  4. DIVALPROEX SODIUM [Concomitant]
  5. COLACE [Concomitant]
  6. LASIX [Concomitant]
  7. GLIPIZIDE [Concomitant]
  8. METFORMIN HCL [Concomitant]
  9. SIMVASTATIN [Concomitant]
  10. SPIRONOLACTONE [Concomitant]

REACTIONS (6)
  - ARTHRALGIA [None]
  - ELECTROCARDIOGRAM T WAVE INVERSION [None]
  - FALL [None]
  - GOUT [None]
  - MENTAL STATUS CHANGES [None]
  - TROPONIN INCREASED [None]
